FAERS Safety Report 6672213-X (Version None)
Quarter: 2010Q2

REPORT INFORMATION
  Report Type: 
  Country: None (occurrence: None)
  Receive Date: 20100408
  Receipt Date: 20100330
  Transmission Date: 20101027
  Serious: No
  Sender: FDA-Public Use
  Company Number: US-BIOGENIDEC-2010BI010498

PATIENT
  Age: 43 Year
  Sex: Female

DRUGS (2)
  1. AVONEX [Suspect]
     Indication: MULTIPLE SCLEROSIS
     Route: 030
     Dates: start: 20080301, end: 20090101
  2. AVONEX [Suspect]
     Route: 030
     Dates: start: 20090101

REACTIONS (10)
  - CRYING [None]
  - FATIGUE [None]
  - FEELING COLD [None]
  - FEELING HOT [None]
  - HUNGER [None]
  - INJECTION SITE HAEMORRHAGE [None]
  - INJECTION SITE PAIN [None]
  - PAIN [None]
  - TREMOR [None]
  - WEIGHT INCREASED [None]
